FAERS Safety Report 24046274 (Version 3)
Quarter: 2024Q3

REPORT INFORMATION
  Report Type: Spontaneous
  Country: US (occurrence: US)
  Receive Date: 20240703
  Receipt Date: 20240808
  Transmission Date: 20241016
  Serious: Yes (Hospitalization)
  Sender: PFIZER
  Company Number: US-PFIZER INC-202400204382

PATIENT
  Age: 21 Year
  Sex: Female
  Weight: 58.957 kg

DRUGS (2)
  1. DEPO-PROVERA [Suspect]
     Active Substance: MEDROXYPROGESTERONE ACETATE
     Indication: Contraception
     Dosage: HAD THE SHOT TWICE/I ONLY GOT IT TWICE
     Route: 030
     Dates: start: 20240109, end: 20240709
  2. MIDODRINE [Concomitant]
     Active Substance: MIDODRINE
     Indication: Postural orthostatic tachycardia syndrome
     Dosage: 25 MG, 1X/DAY

REACTIONS (5)
  - Hypothalamo-pituitary disorder [Recovering/Resolving]
  - Adrenal insufficiency [Recovering/Resolving]
  - Pain [Unknown]
  - Post-traumatic stress disorder [Unknown]
  - Cardiac disorder [Unknown]

NARRATIVE: CASE EVENT DATE: 20240201
